FAERS Safety Report 21563765 (Version 1)
Quarter: 2022Q4

REPORT INFORMATION
  Report Type: Spontaneous
  Country: BR (occurrence: BR)
  Receive Date: 20221108
  Receipt Date: 20221108
  Transmission Date: 20230112
  Serious: Yes (Other)
  Sender: FDA-Public Use
  Company Number: BR-Melinta Therapeutics, LLC-BR-MLNT-22-00225

PATIENT
  Age: 80 Year
  Sex: Female

DRUGS (1)
  1. DELAFLOXACIN [Suspect]
     Active Substance: DELAFLOXACIN
     Indication: Arthritis bacterial
     Dosage: NOT PROVIDED

REACTIONS (4)
  - Renal failure [Recovered/Resolved]
  - Endocarditis [Unknown]
  - Cardiac valve vegetation [Unknown]
  - Off label use [Recovered/Resolved]
